FAERS Safety Report 12115111 (Version 1)
Quarter: 2016Q1

REPORT INFORMATION
  Report Type: Spontaneous
  Country: US (occurrence: None)
  Receive Date: 20160224
  Receipt Date: 20160224
  Transmission Date: 20160526
  Serious: Yes (Disabling, Other)
  Sender: FDA-Public Use
  Company Number: None

PATIENT
  Age: 72 Year
  Sex: Female
  Weight: 50.8 kg

DRUGS (24)
  1. BELSOMRA [Suspect]
     Active Substance: SUVOREXANT
     Indication: THYROID CANCER STAGE IV
     Route: 048
     Dates: start: 20160210, end: 20160211
  2. BELSOMRA [Suspect]
     Active Substance: SUVOREXANT
     Indication: INSOMNIA
     Route: 048
     Dates: start: 20160210, end: 20160211
  3. BELSOMRA [Suspect]
     Active Substance: SUVOREXANT
     Route: 048
  4. GEORGE^S ALOE VERA [Concomitant]
  5. MAGNESIUM [Concomitant]
     Active Substance: MAGNESIUM
  6. ZEGERID [Concomitant]
     Active Substance: OMEPRAZOLE\SODIUM BICARBONATE
  7. ACIPHEX [Concomitant]
     Active Substance: RABEPRAZOLE SODIUM
  8. RANITIDINE [Concomitant]
     Active Substance: RANITIDINE\RANITIDINE HYDROCHLORIDE
  9. OMNARIS [Concomitant]
     Active Substance: CICLESONIDE
  10. SPIRIVA INHALATION [Concomitant]
  11. B-12 COMPLEX [Concomitant]
  12. NEXIUM [Concomitant]
     Active Substance: ESOMEPRAZOLE MAGNESIUM
  13. BENEFIBER [Concomitant]
     Active Substance: STARCH, WHEAT
  14. LUNESTA [Concomitant]
     Active Substance: ESZOPICLONE
  15. MIRALAX [Concomitant]
     Active Substance: POLYETHYLENE GLYCOL 3350
  16. KAPIDEX [Concomitant]
     Active Substance: DEXLANSOPRAZOLE
  17. CARAFATE [Concomitant]
     Active Substance: SUCRALFATE
  18. BELSOMRA [Suspect]
     Active Substance: SUVOREXANT
     Indication: HYPERTHYROIDISM
     Route: 048
     Dates: start: 20160210, end: 20160211
  19. CITRACAL CALCIUM CITRATE +D3 [Concomitant]
  20. CLARITAN D [Concomitant]
  21. SINGULAIR [Concomitant]
     Active Substance: MONTELUKAST SODIUM
  22. SYNTHROID [Concomitant]
     Active Substance: LEVOTHYROXINE SODIUM
  23. VITAMIN D [Concomitant]
     Active Substance: CHOLECALCIFEROL
  24. RED DYE IN SYNTHROID [Concomitant]

REACTIONS (9)
  - Dysphagia [None]
  - Dizziness [None]
  - Drug effect decreased [None]
  - Hypersensitivity [None]
  - Activities of daily living impaired [None]
  - Eating disorder [None]
  - Dry throat [None]
  - Headache [None]
  - Insomnia [None]

NARRATIVE: CASE EVENT DATE: 20160210
